FAERS Safety Report 5350735-1 (Version None)
Quarter: 2007Q2

REPORT INFORMATION
  Report Type: 
  Country: None (occurrence: None)
  Receive Date: 20070606
  Receipt Date: 20070606
  Transmission Date: 20071010
  Serious: Yes (Other)
  Sender: FDA-Public Use
  Company Number: None

PATIENT
  Age: 40 Year
  Sex: Female
  Weight: 58.514 kg

DRUGS (2)
  1. ZELNORM [Suspect]
     Indication: CONSTIPATION
     Dosage: TAKE 1 TABLET TWICE PER DAY PO
     Route: 048
     Dates: start: 20040501, end: 20070514
  2. ZELNORM [Suspect]
     Indication: IRRITABLE BOWEL SYNDROME
     Dosage: TAKE 1 TABLET TWICE PER DAY PO
     Route: 048
     Dates: start: 20040501, end: 20070514

REACTIONS (3)
  - DIZZINESS [None]
  - DYSARTHRIA [None]
  - DYSPNOEA [None]
